FAERS Safety Report 7645115-X (Version None)
Quarter: 2011Q3

REPORT INFORMATION
  Report Type: 
  Country: None (occurrence: None)
  Receive Date: 20110729
  Receipt Date: 20110726
  Transmission Date: 20111222
  Serious: Yes (Death, Hospitalization, Other)
  Sender: FDA-Public Use
  Company Number: PHHY2011CO53908

PATIENT
  Sex: Female

DRUGS (7)
  1. OMEPRAZOLE [Concomitant]
  2. METOPROLOL TARTRATE [Concomitant]
  3. SANDOSTATIN LAR [Suspect]
     Dosage: 30 MG, EACH 15 DAYS
     Dates: start: 20110628
  4. SANDOSTATIN LAR [Suspect]
     Indication: NEUROENDOCRINE TUMOUR
     Route: 030
     Dates: start: 20110404
  5. SANDOSTATIN LAR [Suspect]
     Dosage: 0.1 MG, EACH 8 HOURS
     Route: 030
     Dates: start: 20110401
  6. PROCTO-GLYVENOL [Suspect]
     Indication: HAEMORRHOIDS
     Dosage: 5 G, UNK
  7. SANDOSTATIN LAR [Suspect]
     Dosage: 20 MG, UNK
     Route: 030
     Dates: start: 20110520

REACTIONS (6)
  - WEIGHT DECREASED [None]
  - DIARRHOEA [None]
  - TACHYCARDIA [None]
  - ASTHENIA [None]
  - DEATH [None]
  - HYPOTENSION [None]
